FAERS Safety Report 6468078-1 (Version None)
Quarter: 2009Q4

REPORT INFORMATION
  Report Type: 
  Country: None (occurrence: None)
  Receive Date: 20091127
  Receipt Date: 20091112
  Transmission Date: 20100525
  Serious: Yes (Other)
  Sender: FDA-Public Use
  Company Number: 1000010309

PATIENT
  Age: 24 Year
  Sex: Male

DRUGS (13)
  1. ESCITALOPRAM [Suspect]
     Indication: AGORAPHOBIA
     Dosage: 10 MG (5 MG, 2 IN 1 D), ORAL
     Route: 048
     Dates: start: 20090701, end: 20090701
  2. ESCITALOPRAM [Suspect]
     Indication: PANIC ATTACK
     Dosage: 10 MG (5 MG, 2 IN 1 D), ORAL
     Route: 048
     Dates: start: 20090701, end: 20090701
  3. ESCITALOPRAM [Suspect]
     Indication: AGORAPHOBIA
     Dosage: 2.5 MG (5 MG, 1 IN 2 D), ORAL
     Route: 048
     Dates: start: 20090701, end: 20090101
  4. ESCITALOPRAM [Suspect]
     Indication: PANIC ATTACK
     Dosage: 2.5 MG (5 MG, 1 IN 2 D), ORAL
     Route: 048
     Dates: start: 20090701, end: 20090101
  5. ESCITALOPRAM [Suspect]
     Indication: AGORAPHOBIA
     Dosage: (10 MG), ORAL
     Route: 048
     Dates: start: 20091001
  6. ESCITALOPRAM [Suspect]
     Indication: PANIC ATTACK
     Dosage: (10 MG), ORAL
     Route: 048
     Dates: start: 20091001
  7. CIPROFLAXACIN [Suspect]
     Indication: URINARY TRACT INFECTION
     Dosage: (250 MG), ORAL
     Route: 048
     Dates: start: 20090601, end: 20090606
  8. FLAGYL [Suspect]
     Indication: URINARY TRACT INFECTION
  9. RIVOTRIL [Concomitant]
  10. AZITROX [Concomitant]
  11. CURAM [Concomitant]
  12. DOXYCYCLIN [Concomitant]
  13. CREATINE MONOHYDRATE [Concomitant]

REACTIONS (20)
  - AGGRESSION [None]
  - ANXIETY [None]
  - APATHY [None]
  - BLOOD GLUCOSE DECREASED [None]
  - DEPRESSION [None]
  - FATIGUE [None]
  - FEELING ABNORMAL [None]
  - HYPERREFLEXIA [None]
  - IRRITABILITY [None]
  - MANIA [None]
  - MUSCLE TWITCHING [None]
  - NAUSEA [None]
  - PANIC ATTACK [None]
  - PARANOIA [None]
  - PYREXIA [None]
  - SOMNOLENCE [None]
  - SUICIDAL IDEATION [None]
  - SWEAT GLAND DISORDER [None]
  - TINNITUS [None]
  - WITHDRAWAL SYNDROME [None]
